FAERS Safety Report 12752376 (Version 3)
Quarter: 2017Q1

REPORT INFORMATION
  Report Type: Spontaneous
  Country: US (occurrence: US)
  Receive Date: 20160915
  Receipt Date: 20170109
  Transmission Date: 20170428
  Serious: No
  Sender: FDA-Public Use
  Company Number: US-009507513-1609USA000469

PATIENT
  Sex: Female

DRUGS (1)
  1. NEXPLANON [Suspect]
     Active Substance: ETONOGESTREL
     Indication: CONTRACEPTION
     Dosage: 1 ROD/3 YEARS
     Route: 059
     Dates: start: 2015, end: 20160908

REACTIONS (3)
  - Vaginal haemorrhage [Unknown]
  - Device breakage [Recovered/Resolved]
  - Device deployment issue [Recovered/Resolved]

NARRATIVE: CASE EVENT DATE: 2015
